FAERS Safety Report 7889380-2 (Version None)
Quarter: 2011Q4

REPORT INFORMATION
  Report Type: 
  Country: None (occurrence: None)
  Receive Date: 20111103
  Receipt Date: 20111031
  Transmission Date: 20120403
  Serious: Yes (Other)
  Sender: FDA-Public Use
  Company Number: IE-JNJFOC-20110202816

PATIENT
  Sex: Male

DRUGS (8)
  1. DOVOBET [Concomitant]
  2. MICARDIS [Concomitant]
  3. SIMPONI [Suspect]
     Indication: PSORIATIC ARTHROPATHY
     Route: 058
  4. PROTHIADEN [Concomitant]
  5. SIMPONI [Suspect]
     Route: 058
     Dates: start: 20110121
  6. SIMPONI [Suspect]
     Route: 058
     Dates: start: 20110121
  7. ATECOR [Concomitant]
  8. SIMPONI [Suspect]
     Indication: CHEST PAIN
     Route: 058

REACTIONS (1)
  - CHEST PAIN [None]
